FAERS Safety Report 14304018 (Version 1)
Quarter: 2017Q4

REPORT INFORMATION
  Report Type: Spontaneous
  Country: JP (occurrence: JP)
  Receive Date: 20171219
  Receipt Date: 20171219
  Transmission Date: 20180321
  Serious: Yes (Other)
  Sender: FDA-Public Use
  Company Number: JP-OTSUKA-JP-2011-10505

PATIENT
  Age: 48 Year
  Sex: Male
  Weight: 42 kg

DRUGS (15)
  1. PURSENNID [Concomitant]
     Active Substance: SENNOSIDES A AND B
     Indication: CONSTIPATION
     Dosage: 12 MG, QD
     Route: 048
  2. RACOL [Concomitant]
     Active Substance: AMINO ACIDS\DEXTROSE\ELECTROLYTES NOS
     Indication: BLOOD GLUCOSE DECREASED
     Dosage: 200 ML, QD
     Route: 048
     Dates: start: 20100218, end: 20100613
  3. ABILIFY [Suspect]
     Active Substance: ARIPIPRAZOLE
     Dosage: 6 MG, BID
     Route: 048
     Dates: start: 20100629, end: 20100713
  4. ABILIFY [Suspect]
     Active Substance: ARIPIPRAZOLE
     Dosage: 12 MG, QD
     Route: 048
     Dates: start: 20100714
  5. ROHYPNOL [Concomitant]
     Active Substance: FLUNITRAZEPAM
     Indication: INSOMNIA
     Dosage: 2 MG, QD
     Route: 048
     Dates: end: 20100712
  6. RIVOTRIL [Concomitant]
     Active Substance: CLONAZEPAM
     Dosage: 0.5 MG, QD
     Route: 048
     Dates: start: 20110224, end: 20110309
  7. ROHYPNOL [Concomitant]
     Active Substance: FLUNITRAZEPAM
     Dosage: 0.5 MG, QD
     Route: 048
     Dates: start: 20100803, end: 20100816
  8. ENSURE [Concomitant]
     Active Substance: AMINO ACIDS\DEXTROSE\ELECTROLYTES NOS\SOYBEAN OIL\VITAMINS
     Indication: BLOOD GLUCOSE DECREASED
     Dosage: 250 ML, QD
     Route: 048
     Dates: start: 20100614
  9. FLUNITRAZEPAM [Concomitant]
     Active Substance: FLUNITRAZEPAM
     Dosage: TAB
     Dates: start: 20100816, end: 20100816
  10. ROHYPNOL [Concomitant]
     Active Substance: FLUNITRAZEPAM
     Dosage: 1.5 MG, QD
     Route: 048
     Dates: start: 20100713, end: 20100726
  11. ROHYPNOL [Concomitant]
     Active Substance: FLUNITRAZEPAM
     Dosage: 1 MG, QD
     Route: 048
     Dates: start: 20100727, end: 20100802
  12. ABILIFY [Suspect]
     Active Substance: ARIPIPRAZOLE
     Indication: SCHIZOPHRENIA
     Dosage: 3 MG, BID
     Route: 048
     Dates: start: 20100517, end: 20100628
  13. FORIT [Concomitant]
     Active Substance: OXYPERTINE
     Indication: INSOMNIA
     Dosage: 40 MG, QD
     Route: 048
     Dates: start: 20100916, end: 20100921
  14. RIVOTRIL [Concomitant]
     Active Substance: CLONAZEPAM
     Indication: INSOMNIA
     Dosage: 1 MG, QD
     Route: 048
     Dates: start: 20100927, end: 20110223
  15. SENNA [Concomitant]
     Active Substance: SENNA LEAF\SENNOSIDES\SENNOSIDES A AND B
     Dosage: TAB

REACTIONS (1)
  - Blood glucose decreased [Recovered/Resolved]

NARRATIVE: CASE EVENT DATE: 20100519
